FAERS Safety Report 17905566 (Version 6)
Quarter: 2022Q3

REPORT INFORMATION
  Report Type: Report from Study
  Country: US (occurrence: US)
  Receive Date: 20200616
  Receipt Date: 20220915
  Transmission Date: 20221027
  Serious: Yes (Hospitalization)
  Sender: FDA-Public Use
  Company Number: US-NOVARTISTESTPH-NVSC2020US168291

PATIENT
  Sex: Male

DRUGS (3)
  1. COSENTYX [Suspect]
     Active Substance: SECUKINUMAB
     Indication: Psoriasis
     Dosage: 300 MG/ML,(150 MG/MLX2) QMO (EVERY 4 WEEKS)
     Route: 058
     Dates: start: 2020
  2. COSENTYX [Suspect]
     Active Substance: SECUKINUMAB
     Dosage: 300 MG/ML,(150 MG/MLX2) QMO (EVERY 4 WEEKS), 20 DAYS AGO
     Route: 058
     Dates: start: 2020
  3. VITAMIN C [Concomitant]
     Active Substance: ASCORBIC ACID
     Indication: Vitamin supplementation
     Dosage: UNK
     Route: 065

REACTIONS (14)
  - Gastrointestinal bacterial infection [Unknown]
  - Diarrhoea haemorrhagic [Unknown]
  - Abdominal pain upper [Unknown]
  - Vomiting [Unknown]
  - Myalgia [Unknown]
  - Discomfort [Unknown]
  - Fatigue [Unknown]
  - Influenza like illness [Unknown]
  - Weight decreased [Unknown]
  - COVID-19 [Unknown]
  - Bronchitis [Unknown]
  - Cough [Unknown]
  - Pain in extremity [Unknown]
  - Rebound psoriasis [Not Recovered/Not Resolved]

NARRATIVE: CASE EVENT DATE: 20200101
